FAERS Safety Report 11242236 (Version 3)
Quarter: 2015Q3

REPORT INFORMATION
  Report Type: Report from Study
  Country: US (occurrence: US)
  Receive Date: 20150707
  Receipt Date: 20150827
  Transmission Date: 20151125
  Serious: No
  Sender: FDA-Public Use
  Company Number: US-AMGEN-USASL2015064865

PATIENT
  Age: 53 Year
  Sex: Female

DRUGS (2)
  1. ENBREL [Suspect]
     Active Substance: ETANERCEPT
     Indication: RHEUMATOID ARTHRITIS
     Dosage: 50 MG, QWK
     Route: 065
     Dates: start: 20000101
  2. ENBREL [Suspect]
     Active Substance: ETANERCEPT
     Dosage: 50 MG, QWK
     Route: 065
     Dates: start: 20150607

REACTIONS (13)
  - Poor quality sleep [Not Recovered/Not Resolved]
  - Arthralgia [Unknown]
  - Injection site pruritus [Unknown]
  - Joint swelling [Unknown]
  - Injection site erythema [Unknown]
  - Fatigue [Recovered/Resolved]
  - Injection site mass [Unknown]
  - Pain in extremity [Unknown]
  - Injection site swelling [Unknown]
  - Vomiting [Recovered/Resolved]
  - Drug effect decreased [Unknown]
  - Injection site bruising [Unknown]
  - Nausea [Recovered/Resolved]

NARRATIVE: CASE EVENT DATE: 201506
